FAERS Safety Report 6403301-0 (Version None)
Quarter: 2009Q4

REPORT INFORMATION
  Report Type: 
  Country: None (occurrence: None)
  Receive Date: 20091016
  Receipt Date: 20080916
  Transmission Date: 20100525
  Serious: No
  Sender: FDA-Public Use
  Company Number: A0748868A

PATIENT
  Sex: Female

DRUGS (1)
  1. CEFTIN [Suspect]
     Indication: DRUG USE FOR UNKNOWN INDICATION
     Route: 065

REACTIONS (1)
  - ADVERSE DRUG REACTION [None]
